FAERS Safety Report 6173538-7 (Version None)
Quarter: 2009Q2

REPORT INFORMATION
  Report Type: 
  Country: None (occurrence: None)
  Receive Date: 20090430
  Receipt Date: 20090420
  Transmission Date: 20091009
  Serious: Yes (Other)
  Sender: FDA-Public Use
  Company Number: B0569567A

PATIENT
  Sex: Male

DRUGS (5)
  1. ZANTAC [Suspect]
     Indication: GASTRITIS
     Dosage: 150MG THREE TIMES PER DAY
     Route: 048
     Dates: start: 20090101
  2. GASMOTIN [Concomitant]
     Route: 048
  3. SILODOSIN [Concomitant]
  4. UBRETID [Concomitant]
  5. TERNELIN [Concomitant]

REACTIONS (4)
  - ALANINE AMINOTRANSFERASE INCREASED [None]
  - ASPARTATE AMINOTRANSFERASE INCREASED [None]
  - BLOOD LACTATE DEHYDROGENASE INCREASED [None]
  - LIVER FUNCTION TEST ABNORMAL [None]
